FAERS Safety Report 23380388 (Version 2)
Quarter: 2024Q1

REPORT INFORMATION
  Report Type: Spontaneous
  Country: DE (occurrence: DE)
  Receive Date: 20240109
  Receipt Date: 20240202
  Transmission Date: 20240409
  Serious: Yes (Hospitalization, Other)
  Sender: FDA-Public Use
  Company Number: DE-CELLTRION INC.-2024DE000168

PATIENT

DRUGS (9)
  1. ONTRUZANT [Suspect]
     Active Substance: TRASTUZUMAB-DTTB
     Indication: Oesophageal adenocarcinoma
     Dosage: 6 MG/KG, EVERY 3 WEEKS (DOSAGE TEXT: DOSE: 414 MG, D22/D43)
     Route: 042
     Dates: start: 20230914
  2. ONTRUZANT [Suspect]
     Active Substance: TRASTUZUMAB-DTTB
     Dosage: UNK, D1
     Route: 042
     Dates: start: 20230802
  3. TRASTUZUMAB [Suspect]
     Active Substance: TRASTUZUMAB
     Indication: Oesophageal adenocarcinoma
     Dosage: 6 MG/KG, EVERY 3 WEEKS, DOSE: 414 MG, D22/D43
     Route: 042
     Dates: start: 20230914
  4. TRASTUZUMAB [Suspect]
     Active Substance: TRASTUZUMAB
     Dosage: 8 MG/KG, D1
     Route: 042
     Dates: start: 20230802
  5. FLUOROURACIL [Suspect]
     Active Substance: FLUOROURACIL
     Indication: Product used for unknown indication
     Dosage: 4800 MG, 2600 MG/M2, IV, D1/D15/D29 AND D43 PRE- AND POST OP
     Route: 042
     Dates: start: 20230802, end: 20230831
  6. DOCETAXEL [Suspect]
     Active Substance: DOCETAXEL\DOCETAXEL ANHYDROUS
     Indication: Product used for unknown indication
     Dosage: 70 MG, 50 MG/M2, IV, D1/D15/D29 AND D43 PRE- AND POST OP
     Route: 042
     Dates: start: 20230802, end: 20230914
  7. LEUCOVORIN [Suspect]
     Active Substance: LEUCOVORIN\LEUCOVORIN CALCIUM
     Indication: Product used for unknown indication
     Dosage: 370 MG, 200 MG/M2, IV, D1/D15/D29 AND D43 PRE- AND POST OP
     Route: 042
     Dates: start: 20230802, end: 20230914
  8. PEMBROLIZUMAB [Suspect]
     Active Substance: PEMBROLIZUMAB
     Indication: Product used for unknown indication
     Dosage: 200 MG, EVERY 3 WEEKS, 200 MG FLAT DOSE, IV D1/D22/D43 PRE AND POST OP, AFTERWARDS D1 Q3
     Route: 042
     Dates: start: 20230802, end: 20230914
  9. OXALIPLATIN [Suspect]
     Active Substance: OXALIPLATIN
     Indication: Product used for unknown indication
     Dosage: 118 MG, 85 MG/M2, IV D1/D15/D29 AND D43 PRE AND POST OP
     Route: 042
     Dates: start: 20230802, end: 20230914

REACTIONS (4)
  - Gastrointestinal anastomotic leak [Not Recovered/Not Resolved]
  - Pyrexia [Not Recovered/Not Resolved]
  - Pleural effusion [Not Recovered/Not Resolved]
  - Product use in unapproved indication [Unknown]

NARRATIVE: CASE EVENT DATE: 20231109
